FAERS Safety Report 5103093-1 (Version None)
Quarter: 2006Q3

REPORT INFORMATION
  Report Type: 
  Country: None (occurrence: None)
  Receive Date: 20060905
  Receipt Date: 20060829
  Transmission Date: 20061208
  Serious: Yes (Life-Threatening, Hospitalization, Other)
  Sender: FDA-Public Use
  Company Number: HQWYE094229AUG06

PATIENT
  Age: 51 Year
  Sex: Female

DRUGS (1)
  1. INDERAL [Suspect]
     Indication: PANIC ATTACK

REACTIONS (21)
  - ADRENAL DISORDER [None]
  - ADRENAL MASS [None]
  - CATECHOLAMINES URINE INCREASED [None]
  - DYSPNOEA [None]
  - ECHOCARDIOGRAM ABNORMAL [None]
  - GENERAL PHYSICAL HEALTH DETERIORATION [None]
  - HYPERHIDROSIS [None]
  - HYPERTENSION [None]
  - HYPOXIA [None]
  - LABILE BLOOD PRESSURE [None]
  - METANEPHRINE URINE INCREASED [None]
  - MYOCARDIAL INFARCTION [None]
  - PALPITATIONS [None]
  - PHAEOCHROMOCYTOMA [None]
  - PULMONARY OEDEMA [None]
  - PYREXIA [None]
  - RENAL FAILURE ACUTE [None]
  - SINUS TACHYCARDIA [None]
  - VENTRICULAR HYPERTROPHY [None]
  - VOMITING [None]
  - WHITE BLOOD CELL COUNT INCREASED [None]
